FAERS Safety Report 15317319 (Version 1)
Quarter: 2018Q3

REPORT INFORMATION
  Report Type: Spontaneous
  Country: US (occurrence: US)
  Receive Date: 20180824
  Receipt Date: 20180824
  Transmission Date: 20181010
  Serious: No
  Sender: FDA-Public Use
  Company Number: US-IDENTI PHARMACEUTICALS LLC -2054205

PATIENT
  Sex: Male

DRUGS (3)
  1. FLUOCINOLONE ACETONIDE. [Suspect]
     Active Substance: FLUOCINOLONE ACETONIDE
     Route: 061
  2. TRIAMCINOLONE CREAM [Concomitant]
     Active Substance: TRIAMCINOLONE
     Route: 065
  3. KETOCONAZOLE. [Concomitant]
     Active Substance: KETOCONAZOLE
     Route: 065

REACTIONS (2)
  - Skin exfoliation [Unknown]
  - Pruritus [Unknown]

NARRATIVE: CASE EVENT DATE: 20180227
